FAERS Safety Report 9310350 (Version 1)
Quarter: 2013Q2

REPORT INFORMATION
  Report Type: Other
  Country: None (occurrence: CA)
  Receive Date: 20130527
  Receipt Date: 20130527
  Transmission Date: 20140414
  Serious: Yes (Death)
  Sender: FDA-Public Use
  Company Number: CA-GALEN LIMITED-AE-2013/0532

PATIENT
  Age: 44 Year
  Sex: Male

DRUGS (4)
  1. DAUNOMYCIN [Suspect]
     Indication: T-CELL LYMPHOMA
  2. PREDNISONE [Concomitant]
     Indication: T-CELL LYMPHOMA
  3. CYCLOPHOSPHAMIDE [Concomitant]
     Indication: T-CELL LYMPHOMA
  4. VINCRISTINE [Concomitant]
     Indication: T-CELL LYMPHOMA

REACTIONS (4)
  - Focal segmental glomerulosclerosis [Fatal]
  - Convulsion [None]
  - Transaminases increased [None]
  - Renal failure acute [None]
